FAERS Safety Report 8060450-1 (Version None)
Quarter: 2012Q1

REPORT INFORMATION
  Report Type: 
  Country: None (occurrence: None)
  Receive Date: 20120120
  Receipt Date: 20120113
  Transmission Date: 20120608
  Serious: Yes (Other)
  Sender: FDA-Public Use
  Company Number: JP-GLAXOSMITHKLINE-B0775029A

PATIENT
  Sex: Female

DRUGS (12)
  1. TULOBUTEROL [Concomitant]
     Indication: ASTHMA
     Dosage: 1MG PER DAY
     Route: 062
  2. MONTELUKAST SODIUM [Concomitant]
     Indication: ASTHMA
     Dosage: 10MG PER DAY
     Route: 048
  3. FLUTICASONE PROPIONATE/SALMETEROL [Suspect]
     Indication: ASTHMA
     Dosage: 500MCG PER DAY
     Route: 055
     Dates: start: 20111201
  4. ACETYLCYSTEINE [Concomitant]
     Dosage: 45MG PER DAY
     Route: 048
  5. ALLEGRA [Concomitant]
     Dosage: 60MG PER DAY
     Route: 048
  6. THEO-DUR [Concomitant]
     Dosage: 400MG PER DAY
     Route: 048
  7. VOLTAREN [Concomitant]
     Route: 061
  8. SENNARIDE [Concomitant]
     Dosage: 24MG PER DAY
     Route: 048
  9. MIGLITOL [Concomitant]
     Indication: ASTHMA
     Dosage: 200MG PER DAY
     Route: 048
  10. UNKNOWN [Concomitant]
     Dosage: 70MG PER DAY
     Route: 062
  11. MUCOSTA [Concomitant]
     Dosage: 100MG PER DAY
     Route: 048
  12. FLUTICASONE PROPIONATE [Suspect]
     Indication: ASTHMA
     Dosage: 1000MCG PER DAY
     Route: 055
     Dates: start: 20120109

REACTIONS (3)
  - ASTHMA [None]
  - HEADACHE [None]
  - BACK PAIN [None]
